FAERS Safety Report 10050214 (Version 1)
Quarter: 2014Q2

REPORT INFORMATION
  Report Type: Spontaneous
  Country: FR (occurrence: FR)
  Receive Date: 20140401
  Receipt Date: 20140401
  Transmission Date: 20141212
  Serious: Yes (Hospitalization)
  Sender: FDA-Public Use
  Company Number: FR-PFIZER INC-2014085831

PATIENT
  Age: 54 Year
  Sex: Male

DRUGS (1)
  1. TAHOR [Suspect]
     Dosage: UNK
     Route: 048
     Dates: start: 2014, end: 20140317

REACTIONS (3)
  - Jaundice [Not Recovered/Not Resolved]
  - Hepatocellular injury [Not Recovered/Not Resolved]
  - Cholestasis [Not Recovered/Not Resolved]
